FAERS Safety Report 7797177-7 (Version None)
Quarter: 2011Q4

REPORT INFORMATION
  Report Type: 
  Country: None (occurrence: None)
  Receive Date: 20111005
  Receipt Date: 20110929
  Transmission Date: 20120403
  Serious: Yes (Death, Other)
  Sender: FDA-Public Use
  Company Number: PHHY2011BR86873

PATIENT
  Sex: Female

DRUGS (5)
  1. ZELMAC [Suspect]
     Indication: IRRITABLE BOWEL SYNDROME
     Dosage: 1 DF, BID
     Route: 048
  2. AGIOLAX [Concomitant]
     Indication: ABDOMINAL DISCOMFORT
     Dosage: 1 SOUP SPOON
  3. PRE-SATE [Concomitant]
     Indication: HYPERTENSION
     Dosage: 1 TABLET
     Route: 048
  4. STRENG [Concomitant]
     Dosage: 1 VIAL IN FASTING
     Route: 048
  5. ALPRAZOLAM [Concomitant]
     Indication: ABDOMINAL DISCOMFORT
     Dosage: HALF TABLET A DAY

REACTIONS (4)
  - INTESTINAL OBSTRUCTION [None]
  - SEPSIS [None]
  - CONSTIPATION [None]
  - GASTROINTESTINAL MUCOSAL NECROSIS [None]
